FAERS Safety Report 12373231 (Version 1)
Quarter: 2016Q2

REPORT INFORMATION
  Report Type: Spontaneous
  Country: CA (occurrence: CA)
  Receive Date: 20160516
  Receipt Date: 20160516
  Transmission Date: 20160815
  Serious: Yes (Hospitalization, Other)
  Sender: FDA-Public Use
  Company Number: CA-BAXALTA-2016BLT003247

PATIENT
  Sex: Female

DRUGS (1)
  1. GAMMAGARD LIQUID [Suspect]
     Active Substance: HUMAN IMMUNOGLOBULIN G
     Indication: PRODUCT USED FOR UNKNOWN INDICATION
     Dosage: 20 G, UNK, 1ST DOSE
     Route: 065
     Dates: start: 20160205, end: 20160205

REACTIONS (6)
  - Dyspnoea [Recovered/Resolved]
  - Tremor [Unknown]
  - Hypertension [Recovered/Resolved]
  - Anxiety [Unknown]
  - Respiratory arrest [Unknown]
  - Hypoxia [Recovered/Resolved]

NARRATIVE: CASE EVENT DATE: 20160205
